FAERS Safety Report 7130219-0 (Version None)
Quarter: 2010Q4

REPORT INFORMATION
  Report Type: 
  Country: None (occurrence: None)
  Receive Date: 20101116
  Receipt Date: 20101105
  Transmission Date: 20110411
  Serious: Yes (Life-Threatening)
  Sender: FDA-Public Use
  Company Number: OMPQ-NO-1011S-0978

PATIENT
  Age: 70 Year
  Sex: Female

DRUGS (1)
  1. OMNIPAQUE 140 [Suspect]
     Indication: COLON CANCER
     Dosage: 140 ML, SINGLE DOSE, I.V.
     Route: 042
     Dates: start: 20101104, end: 20101104

REACTIONS (3)
  - ANAPHYLACTOID REACTION [None]
  - BRONCHOSPASM [None]
  - HYPERTENSION [None]
